FAERS Safety Report 6497669-7 (Version None)
Quarter: 2009Q4

REPORT INFORMATION
  Report Type: 
  Country: None (occurrence: None)
  Receive Date: 20091215
  Receipt Date: 20091204
  Transmission Date: 20100525
  Serious: Yes (Hospitalization)
  Sender: FDA-Public Use
  Company Number: US-ELI_LILLY_AND_COMPANY-US200912000742

PATIENT
  Sex: Female
  Weight: 54 kg

DRUGS (14)
  1. PEMETREXED [Suspect]
     Indication: NON-SMALL CELL LUNG CANCER
     Dosage: 500 MG/M2, OTHER
     Route: 042
     Dates: start: 20091019
  2. CARBOPLATIN [Suspect]
     Indication: NON-SMALL CELL LUNG CANCER
     Dosage: 6 D/F, OTHER
     Route: 042
     Dates: start: 20091019
  3. BEVACIZUMAB [Suspect]
     Indication: NON-SMALL CELL LUNG CANCER
     Dosage: 15 MG/M2, OTHER
     Route: 042
     Dates: start: 20091019
  4. HYDROCODONE [Concomitant]
     Indication: PAIN
  5. MOTRIN [Concomitant]
     Indication: PAIN
  6. TYLENOL                                 /SCH/ [Concomitant]
     Indication: PAIN
  7. COUMADIN [Concomitant]
     Indication: ANTICOAGULANT THERAPY
  8. SYMBICORT [Concomitant]
     Indication: DYSPNOEA
  9. LEVAQUIN [Concomitant]
     Indication: INFECTION
  10. ALBUTEROL [Concomitant]
     Indication: DYSPNOEA
  11. ZOFRAN [Concomitant]
     Indication: NAUSEA
  12. AMITRIPTYLINE [Concomitant]
     Indication: MIGRAINE
  13. FOLIC ACID [Concomitant]
     Indication: SUPPLEMENTATION THERAPY
  14. CALCIUM [Concomitant]
     Indication: SUPPLEMENTATION THERAPY

REACTIONS (1)
  - HAEMOPTYSIS [None]
